FAERS Safety Report 12311453 (Version 1)
Quarter: 2016Q2

REPORT INFORMATION
  Report Type: Other
  Country: US (occurrence: US)
  Receive Date: 20160427
  Receipt Date: 20160427
  Transmission Date: 20160815
  Serious: Yes (Disabling, Other)
  Sender: FDA-Public Use
  Company Number: US-WARNER CHILCOTT, LLC-1051104

PATIENT
  Sex: Male

DRUGS (7)
  1. RISEDRONATE SODIUM. [Suspect]
     Active Substance: RISEDRONATE SODIUM
     Route: 048
  2. CALCITONIN, HUMAN [Concomitant]
  3. PAMIDRONATE [Suspect]
     Active Substance: PAMIDRONATE DISODIUM
     Route: 065
  4. ALENDRONATE [Suspect]
     Active Substance: ALENDRONATE SODIUM
     Route: 065
  5. DIDRONEL [Suspect]
     Active Substance: ETIDRONATE DISODIUM
     Indication: OSTEOPROTEGERIN
     Route: 048
  6. ALFACALCIDOL [Suspect]
     Active Substance: ALFACALCIDOL
     Route: 065
  7. DENOSUMAB [Concomitant]
     Active Substance: DENOSUMAB

REACTIONS (2)
  - Extraskeletal ossification [Unknown]
  - Deafness [Unknown]
